FAERS Safety Report 3894178 (Version 4)
Quarter: 2012Q4

REPORT INFORMATION
  Report Type: Report from Study
  Country: MY (occurrence: MY)
  Receive Date: 20021230
  Receipt Date: 20121226
  Transmission Date: 20130627
  Serious: Yes (Hospitalization)
  Sender: FDA-Public Use
  Company Number: PHHO2002MY09373

PATIENT
  Age: 50 Year
  Sex: Male
  Weight: 89 kg

DRUGS (8)
  1. NEORAL [Suspect]
     Indication: RENAL TRANSPLANT
     Route: 048
     Dates: start: 20021115, end: 20021203
  2. NEORAL [Interacting]
     Dosage: 75 mg, BID
     Route: 048
     Dates: start: 20021209
  3. NEORAL [Interacting]
     Dosage: 100 mg, BID
     Route: 048
     Dates: start: 20021204, end: 20021208
  4. MYCOPHENOLIC ACID [Suspect]
     Indication: RENAL TRANSPLANT
     Dosage: 720 mg, BID
     Route: 048
     Dates: start: 20020814, end: 20021124
  5. MYCOPHENOLIC ACID [Suspect]
     Dosage: 360 mg, BID
     Route: 048
     Dates: start: 20021125
  6. TAZOCIN [Interacting]
  7. IRBESARTAN [Suspect]
  8. HEPARIN [Suspect]
     Indication: DEEP VEIN THROMBOSIS

REACTIONS (14)
  - Toxicity to various agents [Recovered/Resolved]
  - Tremor [Recovered/Resolved]
  - Hyperkalaemia [Recovered/Resolved]
  - Drug interaction [Unknown]
  - Sepsis [Recovered/Resolved with Sequelae]
  - Cellulitis gangrenous [Recovered/Resolved with Sequelae]
  - Pyrexia [Recovered/Resolved with Sequelae]
  - Haemorrhage [Recovered/Resolved with Sequelae]
  - Ulcer [Recovered/Resolved with Sequelae]
  - Myalgia [Recovered/Resolved with Sequelae]
  - Anaemia [Recovered/Resolved]
  - Hyperkeratosis [Recovered/Resolved with Sequelae]
  - Gastritis [Recovered/Resolved]
  - Acute tonsillitis [Recovered/Resolved]
